FAERS Safety Report 9536237 (Version 1)
Quarter: 2013Q3

REPORT INFORMATION
  Report Type: Spontaneous
  Country: FR (occurrence: FR)
  Receive Date: 20130919
  Receipt Date: 20130919
  Transmission Date: 20140515
  Serious: Yes (Death, Life-Threatening, Hospitalization, Other)
  Sender: FDA-Public Use
  Company Number: FR-JNJFOC-20130909985

PATIENT
  Age: 79 Year
  Sex: Female

DRUGS (3)
  1. XARELTO [Suspect]
     Indication: PRODUCT USED FOR UNKNOWN INDICATION
     Route: 048
     Dates: start: 201212, end: 20130821
  2. BISOPROLOL [Concomitant]
     Route: 065
  3. FELODIPINE [Concomitant]
     Route: 065

REACTIONS (2)
  - Ischaemic stroke [Fatal]
  - Cerebral haemorrhage [Fatal]
